FAERS Safety Report 22176338 (Version 1)
Quarter: 2023Q2

REPORT INFORMATION
  Report Type: Spontaneous
  Country: US (occurrence: None)
  Receive Date: 20230405
  Receipt Date: 20230405
  Transmission Date: 20230721
  Serious: No
  Sender: FDA-Public Use
  Company Number: 2023A060009

PATIENT
  Age: 15997 Day
  Sex: Female

DRUGS (1)
  1. SAPHNELO [Suspect]
     Active Substance: ANIFROLUMAB-FNIA
     Indication: Systemic lupus erythematosus
     Route: 042
     Dates: start: 20220718, end: 20221006

REACTIONS (9)
  - Fatigue [Unknown]
  - Brain fog [Unknown]
  - Pain [Unknown]
  - Myalgia [Unknown]
  - Arthralgia [Unknown]
  - Swelling [Unknown]
  - Discomfort [Unknown]
  - Headache [Unknown]
  - Ear pain [Unknown]

NARRATIVE: CASE EVENT DATE: 20221011
